FAERS Safety Report 10363289 (Version 1)
Quarter: 2014Q3

REPORT INFORMATION
  Report Type: Spontaneous
  Country: DE (occurrence: DE)
  Receive Date: 20140805
  Receipt Date: 20140805
  Transmission Date: 20150326
  Serious: Yes (Other)
  Sender: FDA-Public Use
  Company Number: DE-PFIZER INC-2014212908

PATIENT
  Age: 3 Day
  Sex: Male

DRUGS (1)
  1. MINPROG [Suspect]
     Active Substance: ALPROSTADIL
     Dosage: 500 UG, UNK

REACTIONS (2)
  - Wrong drug administered [Unknown]
  - Patent ductus arteriosus [Unknown]
